FAERS Safety Report 5236080-3 (Version None)
Quarter: 2007Q1

REPORT INFORMATION
  Report Type: 
  Country: None (occurrence: None)
  Receive Date: 20070212
  Receipt Date: 20070131
  Transmission Date: 20070707
  Serious: Yes (Life-Threatening, Hospitalization)
  Sender: FDA-Public Use
  Company Number: BG-AMGEN-UK206253

PATIENT
  Sex: Female

DRUGS (6)
  1. DARBEPOETIN ALFA [Suspect]
     Indication: CARDIAC FAILURE
     Route: 042
     Dates: start: 20061219
  2. DIGOXIN [Concomitant]
     Route: 048
  3. ENALAPRIL MALEATE [Concomitant]
     Route: 048
  4. SINTROM [Concomitant]
     Route: 048
  5. SPIRONOLACTONE [Concomitant]
     Route: 048
  6. MORPHINE [Concomitant]
     Route: 042

REACTIONS (2)
  - CARDIAC FAILURE [None]
  - HYPERTENSION [None]
